FAERS Safety Report 8124703-0 (Version None)
Quarter: 2012Q1

REPORT INFORMATION
  Report Type: 
  Country: None (occurrence: None)
  Receive Date: 20120209
  Receipt Date: 20120130
  Transmission Date: 20120608
  Serious: Yes (Other)
  Sender: FDA-Public Use
  Company Number: CH-MPIJNJ-2012-00014

PATIENT

DRUGS (3)
  1. VELCADE [Suspect]
     Dosage: 1 MG, UNK
     Route: 058
     Dates: start: 20111208
  2. VELCADE [Suspect]
     Dosage: 1 MG, UNK
     Route: 058
     Dates: start: 20111103
  3. VELCADE [Suspect]
     Indication: MULTIPLE MYELOMA
     Dosage: 1 MG, UNK
     Route: 042
     Dates: start: 20111027

REACTIONS (4)
  - OFF LABEL USE [None]
  - APPLICATION SITE NECROSIS [None]
  - IMPAIRED HEALING [None]
  - ERYTHEMA [None]
